FAERS Safety Report 19010667 (Version 2)
Quarter: 2021Q1

REPORT INFORMATION
  Report Type: Other
  Country: JP (occurrence: JP)
  Receive Date: 20210316
  Receipt Date: 20210329
  Transmission Date: 20210420
  Serious: Yes (Other)
  Sender: FDA-Public Use
  Company Number: JP-ROCHE-2790378

PATIENT
  Age: 85 Year
  Sex: Female

DRUGS (2)
  1. BEVACIZUMAB. [Suspect]
     Active Substance: BEVACIZUMAB
     Indication: COLON CANCER
     Dosage: DAY1,15
     Route: 041
  2. TIPIRACIL HYDROCHLORIDE;TRIFLURIDINE [Concomitant]
     Active Substance: TIPIRACIL HYDROCHLORIDE\TRIFLURIDINE
     Indication: COLON CANCER
     Dosage: DAY1?5, 8?12, AND FOUR EVERY WEEKS
     Route: 048

REACTIONS (2)
  - Pneumonia bacterial [Unknown]
  - Myelosuppression [Unknown]
